FAERS Safety Report 7222105-2 (Version None)
Quarter: 2011Q1

REPORT INFORMATION
  Report Type: 
  Country: None (occurrence: None)
  Receive Date: 20110112
  Receipt Date: 20110110
  Transmission Date: 20110831
  Serious: No
  Sender: FDA-Public Use
  Company Number: US-JNJFOC-20110102706

PATIENT
  Sex: Female
  Weight: 48.99 kg

DRUGS (9)
  1. SINEMET [Concomitant]
     Indication: PARKINSON'S DISEASE
     Dosage: 25/100 MG THREE TIMES DAILY
     Route: 048
  2. STOOL SOFTENER [Concomitant]
     Indication: CONSTIPATION
     Route: 048
  3. REMERON [Concomitant]
     Indication: SLEEP DISORDER
  4. NEURONTIN [Concomitant]
     Indication: HYPOAESTHESIA
     Route: 048
  5. DILAUDID [Concomitant]
     Indication: BREAKTHROUGH PAIN
     Route: 048
  6. SENNA [Concomitant]
     Indication: CONSTIPATION
     Route: 048
  7. FENTANYL-100 [Suspect]
     Indication: BACK PAIN
     Route: 062
  8. MAXZIDE [Concomitant]
     Indication: HYPERTENSION
     Route: 048
  9. FERROUS  SULFATE [Concomitant]
     Indication: MEDICAL DIET

REACTIONS (1)
  - DRUG ADMINISTERED AT INAPPROPRIATE SITE [None]
